FAERS Safety Report 8987821 (Version 1)
Quarter: 2012Q4

REPORT INFORMATION
  Report Type: 
  Country: CA (occurrence: CA)
  Receive Date: 20121227
  Receipt Date: 20121227
  Transmission Date: 20130627
  Serious: Yes (Other)
  Sender: FDA-Public Use
  Company Number: CA-GLAXOSMITHKLINE-A0883081A

PATIENT
  Age: 61 Year
  Sex: Female
  Weight: 60 kg

DRUGS (4)
  1. TYKERB [Suspect]
     Indication: BREAST CANCER METASTATIC
     Dosage: 1250MG Per day
     Route: 048
     Dates: start: 20100531, end: 20120815
  2. FEMARA [Concomitant]
     Route: 065
  3. XELODA [Concomitant]
     Route: 065
  4. LETROZOLE [Concomitant]

REACTIONS (11)
  - Diarrhoea [Recovered/Resolved]
  - Vomiting [Recovered/Resolved]
  - Pain [Not Recovered/Not Resolved]
  - Erythema [Not Recovered/Not Resolved]
  - Ill-defined disorder [Not Recovered/Not Resolved]
  - Local swelling [Recovering/Resolving]
  - Paronychia [Recovered/Resolved]
  - Diplopia [Not Recovered/Not Resolved]
  - Malignant neoplasm progression [Unknown]
  - Central nervous system lesion [Unknown]
  - Hepatic lesion [Unknown]
